FAERS Safety Report 6883751-9 (Version None)
Quarter: 2010Q3

REPORT INFORMATION
  Report Type: 
  Country: None (occurrence: None)
  Receive Date: 20100729
  Receipt Date: 20100722
  Transmission Date: 20110219
  Serious: Yes (Other)
  Sender: FDA-Public Use
  Company Number: B0665787A

PATIENT
  Age: 35 Year
  Sex: Female

DRUGS (4)
  1. PAROXETINE HCL [Suspect]
     Indication: PANIC DISORDER
     Dosage: 20MG UNKNOWN
     Route: 048
  2. VALPROATE SODIUM [Concomitant]
     Dosage: 400MG UNKNOWN
     Route: 065
  3. OLANZAPINE [Concomitant]
     Dosage: 2.5MG PER DAY
     Route: 065
  4. ALPRAZOLAM [Concomitant]
     Dosage: .5MG AS REQUIRED
     Route: 065

REACTIONS (9)
  - ACTIVATION SYNDROME [None]
  - CRYING [None]
  - FEELING ABNORMAL [None]
  - FEELING GUILTY [None]
  - IMPATIENCE [None]
  - INSOMNIA [None]
  - IRRITABILITY [None]
  - MOOD SWINGS [None]
  - SELF INJURIOUS BEHAVIOUR [None]
